FAERS Safety Report 4278152-6 (Version None)
Quarter: 2004Q1

REPORT INFORMATION
  Report Type: 
  Country: None (occurrence: None)
  Receive Date: 20040121
  Receipt Date: 20040108
  Transmission Date: 20041129
  Serious: Yes (Hospitalization, Disabling)
  Sender: FDA-Public Use
  Company Number: 203642

PATIENT
  Age: 30 Year
  Sex: Male

DRUGS (9)
  1. RITUXAN [Suspect]
     Indication: DIFFUSE LARGE B-CELL LYMPHOMA
     Dosage: 650 MG, 1/WEEK, INTRAVENOUS
     Route: 042
     Dates: start: 20020718, end: 20020808
  2. METHYLPREDNISOLONE [Suspect]
     Indication: PNEUMONITIS
     Dosage: SEE IMAGE
     Route: 042
     Dates: start: 20021118, end: 20021118
  3. METHYLPREDNISOLONE [Suspect]
     Indication: PNEUMONITIS
     Dosage: SEE IMAGE
     Route: 042
     Dates: start: 20021121, end: 20021121
  4. METHYLPREDNISOLONE [Suspect]
     Indication: PNEUMONITIS
     Dosage: SEE IMAGE
     Route: 042
     Dates: start: 20021123, end: 20021123
  5. METHYLPREDNISOLONE [Suspect]
     Indication: PNEUMONITIS
     Dosage: SEE IMAGE
     Route: 042
     Dates: start: 20021126, end: 20021126
  6. HYDROCORTISONE [Concomitant]
  7. CHLORPHENIRAMINE MALEATE [Concomitant]
  8. ACETAMINOPHEN [Concomitant]
  9. IBUPROFEN [Concomitant]

REACTIONS (9)
  - HERPES OPHTHALMIC [None]
  - INFECTION IN AN IMMUNOCOMPROMISED HOST [None]
  - INTERSTITIAL LUNG DISEASE [None]
  - PULMONARY RADIATION INJURY [None]
  - RETINAL DETACHMENT [None]
  - RETINAL INFARCTION [None]
  - RETINAL TEAR [None]
  - VISION BLURRED [None]
  - VISUAL FIELD DEFECT [None]
